FAERS Safety Report 18701695 (Version 1)
Quarter: 2021Q1

REPORT INFORMATION
  Report Type: Spontaneous
  Country: US (occurrence: US)
  Receive Date: 20210105
  Receipt Date: 20210105
  Transmission Date: 20210419
  Serious: Yes (Other)
  Sender: FDA-Public Use
  Company Number: US-AMNEAL PHARMACEUTICALS-2020-AMRX-04107

PATIENT
  Age: 71 Year
  Sex: Female

DRUGS (5)
  1. CEFTOLOZANE [Concomitant]
     Active Substance: CEFTOLOZANE
     Indication: ESCHERICHIA SEPSIS
  2. TAZOBACTAM [Concomitant]
     Active Substance: TAZOBACTAM
     Indication: ESCHERICHIA SEPSIS
     Dosage: UNK
     Route: 065
  3. CEFTOLOZANE [Concomitant]
     Active Substance: CEFTOLOZANE
     Indication: ESCHERICHIA BACTERAEMIA
     Dosage: UNK
     Route: 065
  4. TAZOBACTAM [Concomitant]
     Active Substance: TAZOBACTAM
     Indication: ESCHERICHIA BACTERAEMIA
  5. BACLOFEN. [Suspect]
     Active Substance: BACLOFEN
     Indication: BACK PAIN
     Dosage: 10 MG X 2 DOSES
     Route: 065

REACTIONS (1)
  - Neurotoxicity [Recovered/Resolved]
